FAERS Safety Report 12261862 (Version 1)
Quarter: 2016Q2

REPORT INFORMATION
  Report Type: Spontaneous
  Country: US (occurrence: US)
  Receive Date: 20160413
  Receipt Date: 20160413
  Transmission Date: 20160815
  Serious: No
  Sender: FDA-Public Use
  Company Number: US-BAYER-2016-070145

PATIENT
  Age: 86 Year
  Sex: Female
  Weight: 69.39 kg

DRUGS (3)
  1. ALEVE [Suspect]
     Active Substance: NAPROXEN SODIUM
     Indication: PROPHYLAXIS
     Dosage: 2 DF, BID
     Route: 048
  2. CALCIUM [Concomitant]
     Active Substance: CALCIUM
  3. B VITAMIN COMP [B5,B3,B6,B2,B1 HCL] [Concomitant]

REACTIONS (6)
  - Urticaria [Not Recovered/Not Resolved]
  - Throat irritation [Not Recovered/Not Resolved]
  - Product use issue [None]
  - Product use issue [Unknown]
  - Dyspepsia [Not Recovered/Not Resolved]
  - Pruritus [Not Recovered/Not Resolved]

NARRATIVE: CASE EVENT DATE: 2016
